FAERS Safety Report 4973690-2 (Version None)
Quarter: 2006Q2

REPORT INFORMATION
  Report Type: 
  Country: None (occurrence: None)
  Receive Date: 20060414
  Receipt Date: 20050112
  Transmission Date: 20061013
  Serious: Yes (Hospitalization, Other)
  Sender: FDA-Public Use
  Company Number: US-MERCK-0501USA02371

PATIENT
  Age: 57 Year
  Sex: Female
  Weight: 59 kg

DRUGS (1)
  1. VIOXX [Suspect]
     Indication: ARTHRITIS
     Route: 048
     Dates: start: 20020501, end: 20040901

REACTIONS (5)
  - ACCIDENT [None]
  - CEREBROVASCULAR ACCIDENT [None]
  - FUNGAL INFECTION [None]
  - HEAD INJURY [None]
  - TRANSIENT ISCHAEMIC ATTACK [None]
